FAERS Safety Report 10771776 (Version 2)
Quarter: 2015Q1

REPORT INFORMATION
  Report Type: Spontaneous
  Country: NZ (occurrence: NZ)
  Receive Date: 20150206
  Receipt Date: 20150209
  Transmission Date: 20150721
  Serious: Yes (Other)
  Sender: FDA-Public Use
  Company Number: PHHY2015NZ014263

PATIENT
  Age: 46 Year
  Sex: Male

DRUGS (4)
  1. IBUPROFEN. [Concomitant]
     Active Substance: IBUPROFEN
     Indication: HAEMORRHOID OPERATION
     Route: 048
  2. DICLOFENAC [Suspect]
     Active Substance: DICLOFENAC
     Indication: HAEMORRHOID OPERATION
     Dosage: 75 MG, UNK
     Route: 030
  3. ACETAMINOPHEN. [Concomitant]
     Active Substance: ACETAMINOPHEN
     Indication: HAEMORRHOID OPERATION
     Route: 048
  4. CODEINE PHOSPHATE [Concomitant]
     Active Substance: CODEINE PHOSPHATE
     Indication: HAEMORRHOID OPERATION
     Route: 048

REACTIONS (7)
  - Disseminated intravascular coagulation [Recovered/Resolved]
  - Necrotising fasciitis [Recovered/Resolved]
  - Renal failure [Recovered/Resolved]
  - Streptococcal infection [Recovered/Resolved]
  - Acute respiratory distress syndrome [Recovered/Resolved]
  - Injection site pain [Recovered/Resolved]
  - Muscle necrosis [Recovered/Resolved]
